FAERS Safety Report 15135871 (Version 1)
Quarter: 2018Q3

REPORT INFORMATION
  Report Type: Spontaneous
  Country: ES (occurrence: ES)
  Receive Date: 20180712
  Receipt Date: 20180712
  Transmission Date: 20181010
  Serious: Yes (Hospitalization, Other)
  Sender: FDA-Public Use
  Company Number: ES-MYLANLABS-2018M1049594

PATIENT
  Age: 48 Year
  Sex: Female

DRUGS (3)
  1. DIAZEPAM. [Suspect]
     Active Substance: DIAZEPAM
     Indication: ADJUSTMENT DISORDER
     Dosage: 20 MG, QD, 15?20 MG, QD
     Route: 065
  2. CLONAZEPAM. [Suspect]
     Active Substance: CLONAZEPAM
     Indication: ADJUSTMENT DISORDER
     Dosage: 10 MG, QD, 8?10 MG, QD
     Route: 065
  3. PAROXETINE. [Concomitant]
     Active Substance: PAROXETINE
     Indication: PRODUCT USED FOR UNKNOWN INDICATION
     Dosage: 20 MG, UNK
     Route: 065

REACTIONS (6)
  - Drug abuse [Unknown]
  - Cognitive disorder [Recovering/Resolving]
  - Irritability [Unknown]
  - Anxiety [Unknown]
  - Memory impairment [Unknown]
  - Product use in unapproved indication [Unknown]
